FAERS Safety Report 12453479 (Version 1)
Quarter: 2016Q2

REPORT INFORMATION
  Report Type: Spontaneous
  Country: US (occurrence: US)
  Receive Date: 20160609
  Receipt Date: 20160609
  Transmission Date: 20160815
  Serious: No
  Sender: FDA-Public Use
  Company Number: US-ASTRAZENECA-2016SE43915

PATIENT
  Sex: Male

DRUGS (1)
  1. SYMBICORT [Suspect]
     Active Substance: BUDESONIDE\FORMOTEROL FUMARATE DIHYDRATE
     Dosage: DOSE: 2 PUFFS, FREQUENCY: TWO TIMES A DAY
     Route: 055

REACTIONS (3)
  - Dry throat [Unknown]
  - Dysphonia [Unknown]
  - Intentional product misuse [Unknown]
